FAERS Safety Report 7378057-8 (Version None)
Quarter: 2011Q1

REPORT INFORMATION
  Report Type: 
  Country: None (occurrence: None)
  Receive Date: 20110328
  Receipt Date: 20110322
  Transmission Date: 20110831
  Serious: Yes (Life-Threatening, Other)
  Sender: FDA-Public Use
  Company Number: JP-ASTRAZENECA-2011SE16325

PATIENT
  Age: 81 Year
  Sex: Male
  Weight: 56 kg

DRUGS (5)
  1. BICALUTAMIDE [Concomitant]
     Route: 048
  2. ZOLADEX [Suspect]
     Indication: PROSTATE CANCER
     Route: 058
     Dates: start: 20091124, end: 20110129
  3. LIPITOR [Concomitant]
     Route: 048
  4. CASODEX [Suspect]
     Indication: PROSTATE CANCER
     Route: 048
     Dates: start: 20091124, end: 20110129
  5. BLOPRESS [Concomitant]
     Route: 048

REACTIONS (2)
  - EMBOLISM ARTERIAL [None]
  - CEREBRAL INFARCTION [None]
